FAERS Safety Report 6868678-0 (Version None)
Quarter: 2010Q3

REPORT INFORMATION
  Report Type: 
  Country: None (occurrence: None)
  Receive Date: 20100722
  Receipt Date: 20080711
  Transmission Date: 20110219
  Serious: No
  Sender: FDA-Public Use
  Company Number: US-PFIZER INC-2008050716

PATIENT

DRUGS (1)
  1. CHANTIX [Suspect]
     Dates: start: 20070618, end: 20070624

REACTIONS (5)
  - FATIGUE [None]
  - HEAT EXHAUSTION [None]
  - INFLUENZA LIKE ILLNESS [None]
  - PARAESTHESIA [None]
  - RHEUMATOID ARTHRITIS [None]
